FAERS Safety Report 12969377 (Version 3)
Quarter: 2017Q1

REPORT INFORMATION
  Report Type: Spontaneous
  Country: US (occurrence: US)
  Receive Date: 20161123
  Receipt Date: 20170120
  Transmission Date: 20170428
  Serious: Yes (Other)
  Sender: FDA-Public Use
  Company Number: US-PFIZER INC-2016544709

PATIENT
  Age: 68 Year
  Sex: Female
  Weight: 98 kg

DRUGS (10)
  1. IBUPROFEN. [Concomitant]
     Active Substance: IBUPROFEN
     Indication: PAIN
     Dosage: 800 MG, AS NEEDED
     Dates: start: 1998
  2. LYRICA [Suspect]
     Active Substance: PREGABALIN
     Dosage: 50MG BETWEEN HER MORNING AND EVENING 75MG DOSE
     Dates: start: 20161117
  3. LYRICA [Suspect]
     Active Substance: PREGABALIN
     Dosage: 50 MG, 2X/DAY
     Dates: start: 20161118
  4. LYRICA [Suspect]
     Active Substance: PREGABALIN
     Indication: FIBROMYALGIA
     Dosage: 75 MG, 2X/DAY
  5. STRATTERA [Concomitant]
     Active Substance: ATOMOXETINE HYDROCHLORIDE
     Indication: ATTENTION DEFICIT/HYPERACTIVITY DISORDER
     Dosage: 80 MG, 1X/DAY, TWO 40 MG TABLETS
  6. TIZANIDINE. [Concomitant]
     Active Substance: TIZANIDINE
     Indication: MUSCLE SPASMS
     Dosage: 4 MG, 3X/DAY, EVERY 8 HRS
  7. TIZANIDINE. [Concomitant]
     Active Substance: TIZANIDINE
     Indication: MUSCLE RELAXANT THERAPY
  8. AMLODIPINE BESILATE W/BENAZEPRIL [Concomitant]
     Indication: HYPERTENSION
     Dosage: [AMLODIPINE BESILATE 2.5MG]/[BENAZEPRIL10MG], 1X/DAY
  9. PANTOPRAZOLE [Concomitant]
     Active Substance: PANTOPRAZOLE SODIUM
     Indication: ABDOMINAL DISCOMFORT
     Dosage: 40 MG, 1X/DAY
  10. SAVELLA [Concomitant]
     Active Substance: MILNACIPRAN HYDROCHLORIDE
     Indication: FIBROMYALGIA
     Dosage: 100 MG, 2X/DAY

REACTIONS (9)
  - Feeling abnormal [Recovered/Resolved]
  - Withdrawal syndrome [Unknown]
  - Condition aggravated [Recovered/Resolved]
  - Neuroma [Recovered/Resolved]
  - Poor quality drug administered [Unknown]
  - Intentional product use issue [Unknown]
  - Product quality issue [Unknown]
  - Dependence [Unknown]
  - Pain [Unknown]

NARRATIVE: CASE EVENT DATE: 2014
